FAERS Safety Report 7408979-0 (Version None)
Quarter: 2011Q2

REPORT INFORMATION
  Report Type: 
  Country: None (occurrence: None)
  Receive Date: 20110412
  Receipt Date: 20110328
  Transmission Date: 20111010
  Serious: Yes (Hospitalization)
  Sender: FDA-Public Use
  Company Number: CZ-SANOFI-AVENTIS-2011SA018658

PATIENT
  Age: 56 Year
  Sex: Male

DRUGS (3)
  1. FLUPHENAZINE (SALT NOT SPECIFIED) [Suspect]
     Dosage: DEPOT GALENIC FORM
     Route: 065
  2. BETAXOLOL HYDROCHLORIDE [Suspect]
     Indication: HYPERTENSION
     Route: 065
  3. CLOZAPINE [Suspect]
     Route: 065

REACTIONS (5)
  - VOMITING [None]
  - GASTROINTESTINAL SOUNDS ABNORMAL [None]
  - ILEUS [None]
  - NAUSEA [None]
  - ABDOMINAL DISCOMFORT [None]
